FAERS Safety Report 23756821 (Version 2)
Quarter: 2024Q2

REPORT INFORMATION
  Report Type: Report from Study
  Country: CN (occurrence: CN)
  Receive Date: 20240418
  Receipt Date: 20240423
  Transmission Date: 20240716
  Serious: Yes (Death, Other)
  Sender: FDA-Public Use
  Company Number: CN-PFIZER INC-PV202400050741

PATIENT

DRUGS (7)
  1. METHOTREXATE SODIUM [Suspect]
     Active Substance: METHOTREXATE SODIUM
     Indication: Prophylaxis against graft versus host disease
     Dosage: 15 MG/M2, DAILY, 1 DAY
  2. METHOTREXATE SODIUM [Suspect]
     Active Substance: METHOTREXATE SODIUM
     Dosage: 10 MG/M2, DAILY, DAYS 3, 5, AND 11 AFTER THE TRANSPLANTATION
  3. CYCLOSPORINE [Suspect]
     Active Substance: CYCLOSPORINE
     Indication: Prophylaxis against graft versus host disease
     Dosage: 2.5 MG/KG, DAILY
  4. MYCOPHENOLIC ACID [Suspect]
     Active Substance: MYCOPHENOLIC ACID
     Indication: Prophylaxis against graft versus host disease
     Dosage: 1 G, DAILY, STARTED ON DAY 9 BEFORE THE TRANSPLANTATION
  5. BUSULFAN [Suspect]
     Active Substance: BUSULFAN
     Indication: Adrenoleukodystrophy
     Dosage: 3.2 MG/KG, DAILY
     Route: 042
  6. FLUDARABINE [Suspect]
     Active Substance: FLUDARABINE PHOSPHATE
     Indication: Adrenoleukodystrophy
     Dosage: 30 MG/M2, DAILY, FROM DAYS 6 TO 4
  7. CYCLOPHOSPHAMIDE [Suspect]
     Active Substance: CYCLOPHOSPHAMIDE
     Indication: Adrenoleukodystrophy
     Dosage: UNK, FROM DAYS 5 TO 2

REACTIONS (1)
  - Myocarditis [Fatal]
